FAERS Safety Report 18022711 (Version 6)
Quarter: 2021Q4

REPORT INFORMATION
  Report Type: Spontaneous
  Country: JP (occurrence: JP)
  Receive Date: 20200714
  Receipt Date: 20211011
  Transmission Date: 20220303
  Serious: Yes (Death, Hospitalization, Other)
  Sender: FDA-Public Use
  Company Number: JP-ASTELLAS-2020JP010174

PATIENT
  Age: 75 Year
  Sex: Male
  Weight: 47 kg

DRUGS (9)
  1. CELECOXIB [Suspect]
     Active Substance: CELECOXIB
     Indication: Cancer pain
     Dosage: 100 MG, 2X/DAY (AFTER BREAKFAST AND SUPPER)
     Route: 048
     Dates: start: 20170413, end: 20170915
  2. VONOPRAZAN FUMARATE [Concomitant]
     Active Substance: VONOPRAZAN FUMARATE
     Dosage: 10 MG, 1X/DAY (AFTER BREAKFAST)
     Route: 048
     Dates: end: 20180209
  3. MAGNESIUM OXIDE [Concomitant]
     Active Substance: MAGNESIUM OXIDE
     Dosage: 660 MG, 3X/DAY (AFTER EVERY MEAL)
     Route: 048
     Dates: end: 20180209
  4. PROCHLORPERAZINE MALEATE [Concomitant]
     Active Substance: PROCHLORPERAZINE MALEATE
     Dosage: 5 MG, 3X/DAY (AFTER EVERY MEAL)
     Route: 048
     Dates: end: 20180209
  5. CARBOCYSTEINE [Concomitant]
     Active Substance: CARBOCYSTEINE
     Dosage: 500 MG, 3X/DAY (AFTER EVERY MEAL)
     Route: 048
     Dates: end: 20180209
  6. FUDOSTEINE [Concomitant]
     Active Substance: FUDOSTEINE
     Dosage: 400 MG, 3X/DAY (AFTER EVERY MEAL)
     Route: 048
     Dates: end: 20180209
  7. OXYCODONE [Concomitant]
     Active Substance: OXYCODONE
     Dosage: 20 MG, 2X/DAY (AFTER BREAKFAST AND SUPPER)
     Route: 048
     Dates: end: 20180209
  8. OXYCODONE [Concomitant]
     Active Substance: OXYCODONE
     Indication: Pain
     Dosage: UNK, AS NEEDED
     Route: 048
  9. PIPERACILLIN SODIUM\TAZOBACTAM SODIUM [Concomitant]
     Active Substance: PIPERACILLIN SODIUM\TAZOBACTAM SODIUM
     Indication: Pneumonia bacterial
     Dosage: 45 G, 3X/DAY (45 G/8HR)
     Route: 065
     Dates: start: 20180205, end: 20180209

REACTIONS (4)
  - Pneumonia [Fatal]
  - Respiratory failure [Fatal]
  - Cardiac failure [Fatal]
  - Off label use [Not Recovered/Not Resolved]

NARRATIVE: CASE EVENT DATE: 20170413
